FAERS Safety Report 7898082-8 (Version None)
Quarter: 2011Q4

REPORT INFORMATION
  Report Type: 
  Country: None (occurrence: None)
  Receive Date: 20111107
  Receipt Date: 20111027
  Transmission Date: 20120403
  Serious: Yes (Hospitalization)
  Sender: FDA-Public Use
  Company Number: BR-PFIZER INC-2011256989

PATIENT
  Age: 61 Year
  Sex: Female
  Weight: 66 kg

DRUGS (7)
  1. PANTOPRAZOLE [Suspect]
     Indication: HIATUS HERNIA
     Dosage: 40 MG, 1X/DAY
     Route: 048
     Dates: start: 20111006, end: 20111013
  2. PANTOPRAZOLE [Suspect]
     Dosage: 40 MG, ALTERNATE DAY
     Route: 048
     Dates: start: 20110101, end: 20110101
  3. ATORVASTATIN [Concomitant]
     Indication: BLOOD CHOLESTEROL INCREASED
     Dosage: 1 DF, UNK
     Route: 048
     Dates: start: 20010101
  4. SYNTHROID [Concomitant]
     Indication: HYPOTHYROIDISM
     Dosage: 1 DF, UNK
     Route: 048
     Dates: start: 20070101
  5. LOSARTAN [Concomitant]
     Indication: HYPERTENSION
     Dosage: 25 MG, DAILY
     Route: 048
     Dates: start: 19810101
  6. ATENOLOL [Concomitant]
     Indication: HYPERTENSION
     Dosage: 25 MG, DAILY
     Route: 048
     Dates: start: 19810101
  7. MOTILIUM [Concomitant]
     Indication: HIATUS HERNIA
     Dosage: 1 DF, DAILY
     Route: 048
     Dates: start: 20080101

REACTIONS (1)
  - GASTROOESOPHAGEAL REFLUX DISEASE [None]
